FAERS Safety Report 8470650-4 (Version None)
Quarter: 2012Q2

REPORT INFORMATION
  Report Type: 
  Country: None (occurrence: None)
  Receive Date: 20120323
  Receipt Date: 20111107
  Transmission Date: 20120825
  Serious: Yes (Hospitalization, Other)
  Sender: FDA-Public Use
  Company Number: 163-21880-11081758

PATIENT
  Age: 85 Year
  Sex: Female

DRUGS (3)
  1. REVLIMID [Suspect]
     Indication: MULTIPLE MYELOMA
     Dosage: 10 MG, 1 IN 1 D, PO
     Route: 048
     Dates: start: 20110601
  2. MELPHAN (MELPHAN) [Concomitant]
  3. PREDNISONE TAB [Concomitant]

REACTIONS (5)
  - ERYTHEMA [None]
  - SWELLING FACE [None]
  - HYPERSENSITIVITY [None]
  - LOCALISED OEDEMA [None]
  - OEDEMA PERIPHERAL [None]
